FAERS Safety Report 16924699 (Version 1)
Quarter: 2019Q4

REPORT INFORMATION
  Report Type: Spontaneous
  Country: US (occurrence: US)
  Receive Date: 20191016
  Receipt Date: 20191016
  Transmission Date: 20200122
  Serious: No
  Sender: FDA-Public Use
  Company Number: US-PFIZER INC-2019441038

PATIENT
  Age: 48 Year
  Sex: Female
  Weight: 53.7 kg

DRUGS (1)
  1. LYRICA [Suspect]
     Active Substance: PREGABALIN
     Indication: NEURALGIA
     Dosage: 75 MG, 2X/DAY

REACTIONS (6)
  - Depersonalisation/derealisation disorder [Unknown]
  - Balance disorder [Unknown]
  - Gastrointestinal inflammation [Recovering/Resolving]
  - Somnolence [Unknown]
  - Abdominal discomfort [Recovering/Resolving]
  - Withdrawal syndrome [Unknown]
